FAERS Safety Report 9300517 (Version 1)
Quarter: 2013Q2

REPORT INFORMATION
  Report Type: Spontaneous
  Country: JP (occurrence: JP)
  Receive Date: 20130521
  Receipt Date: 20130521
  Transmission Date: 20140414
  Serious: Yes (Hospitalization)
  Sender: FDA-Public Use
  Company Number: JP-BRISTOL-MYERS SQUIBB COMPANY-18915322

PATIENT
  Age: 83 Year
  Sex: Male

DRUGS (3)
  1. ERBITUX SOLN FOR INF 5MG/ML [Suspect]
     Indication: COLORECTAL CANCER RECURRENT
     Dosage: 06-MAR-2013;SECOND INF
     Route: 041
     Dates: start: 20130226
  2. OXALIPLATIN [Suspect]
     Indication: COLORECTAL CANCER RECURRENT
     Dosage: INTRAVENOUS INFUSION
     Route: 041
     Dates: start: 20130226
  3. TS-1 [Suspect]
     Indication: COLORECTAL CANCER RECURRENT
     Dosage: 06-MAR-2013
     Route: 048
     Dates: start: 20130226

REACTIONS (1)
  - Duodenal ulcer [Unknown]
